FAERS Safety Report 24917461 (Version 7)
Quarter: 2025Q3

REPORT INFORMATION
  Report Type: Report from Study
  Country: US (occurrence: US)
  Receive Date: 20250203
  Receipt Date: 20250731
  Transmission Date: 20251020
  Serious: No
  Sender: SUNOVION
  Company Number: US-SMPA-2025SPA000893AA

PATIENT

DRUGS (2)
  1. ORGOVYX [Suspect]
     Active Substance: RELUGOLIX
     Indication: Prostate cancer
     Route: 048
     Dates: start: 20250110, end: 20250110
  2. ORGOVYX [Suspect]
     Active Substance: RELUGOLIX
     Dosage: 120 MG, QD
     Route: 048
     Dates: start: 20250111

REACTIONS (8)
  - Urinary tract disorder [Unknown]
  - Laboratory test abnormal [Unknown]
  - Balance disorder [Unknown]
  - Viral infection [Unknown]
  - Depressed mood [Unknown]
  - Blood glucose increased [Unknown]
  - Fatigue [Unknown]
  - Asthenia [Unknown]
